FAERS Safety Report 5294541-5 (Version None)
Quarter: 2007Q2

REPORT INFORMATION
  Report Type: 
  Country: None (occurrence: None)
  Receive Date: 20070412
  Receipt Date: 20070405
  Transmission Date: 20071010
  Serious: Yes (Other)
  Sender: FDA-Public Use
  Company Number: FR-JNJFOC-20070304915

PATIENT
  Sex: Female
  Weight: 81 kg

DRUGS (6)
  1. RISPERDAL CONSTA [Suspect]
     Indication: SCHIZOPHRENIA, PARANOID TYPE
     Route: 030
  2. RISPERDAL [Concomitant]
     Indication: SCHIZOPHRENIA
     Route: 048
  3. SEROPLEX [Concomitant]
     Indication: SCHIZOPHRENIA
  4. TERCIAN [Concomitant]
     Indication: ANXIETY
  5. XANAX [Concomitant]
     Indication: ANXIETY
  6. STILNOX [Concomitant]
     Indication: INSOMNIA

REACTIONS (3)
  - GENERALISED ERYTHEMA [None]
  - OEDEMA [None]
  - PRURITUS [None]
